FAERS Safety Report 17765490 (Version 1)
Quarter: 2020Q2

REPORT INFORMATION
  Report Type: Spontaneous
  Country: US (occurrence: US)
  Receive Date: 20200508
  Receipt Date: 20200508
  Transmission Date: 20200714
  Serious: No
  Sender: FDA-Public Use
  Company Number: None

PATIENT
  Sex: Male
  Weight: 108.41 kg

DRUGS (1)
  1. SILDENAFIL 100MG [Suspect]
     Active Substance: SILDENAFIL

REACTIONS (2)
  - Pulmonary congestion [None]
  - Nausea [None]
